FAERS Safety Report 8766162 (Version 1)
Quarter: 2012Q4

REPORT INFORMATION
  Report Type: 
  Country: FR (occurrence: FR)
  Receive Date: 20120904
  Receipt Date: 20120904
  Transmission Date: 20130627
  Serious: Yes (Life-Threatening, Hospitalization)
  Sender: FDA-Public Use
  Company Number: FR-ASTRAZENECA-2012SE65545

PATIENT
  Age: 77 Year
  Sex: Female

DRUGS (12)
  1. INEXIUM [Suspect]
     Route: 048
     Dates: start: 20120731
  2. INEXIUM IV [Suspect]
     Route: 042
     Dates: end: 20120730
  3. NORSET [Suspect]
     Route: 048
     Dates: start: 20120803
  4. CLAFORAN [Suspect]
     Route: 042
     Dates: start: 20120729, end: 20120815
  5. ALDACTONE [Suspect]
     Route: 048
     Dates: start: 20120803, end: 20120814
  6. LOXEN [Concomitant]
     Indication: HYPERTENSION
     Route: 048
     Dates: start: 201208
  7. CORTANCYL [Concomitant]
     Route: 048
  8. CORDARONE [Concomitant]
     Indication: ATRIAL FIBRILLATION
     Route: 048
  9. XANAX [Concomitant]
     Route: 048
  10. HEPARINE [Concomitant]
  11. INSULIN [Concomitant]
  12. PARACETAMOL [Concomitant]

REACTIONS (4)
  - Meningitis pneumococcal [Recovered/Resolved]
  - Septic shock [Recovered/Resolved]
  - Pneumonia pneumococcal [Recovered/Resolved]
  - Agranulocytosis [Recovered/Resolved]
